FAERS Safety Report 18223611 (Version 1)
Quarter: 2020Q3

REPORT INFORMATION
  Report Type: Report from Study
  Country: BR (occurrence: BR)
  Receive Date: 20200902
  Receipt Date: 20200902
  Transmission Date: 20201103
  Serious: Yes (Other)
  Sender: FDA-Public Use
  Company Number: NVSC2020BR240223

PATIENT
  Age: 70 Year
  Sex: Female

DRUGS (2)
  1. KISQALI [Suspect]
     Active Substance: RIBOCICLIB
     Dosage: 2 DF
     Route: 065
  2. KISQALI [Suspect]
     Active Substance: RIBOCICLIB
     Indication: BREAST CANCER
     Dosage: 3 DF
     Route: 065
     Dates: start: 20200225

REACTIONS (2)
  - White blood cell count decreased [Recovering/Resolving]
  - White blood cell count increased [Unknown]

NARRATIVE: CASE EVENT DATE: 20200813
